FAERS Safety Report 16454532 (Version 1)
Quarter: 2019Q2

REPORT INFORMATION
  Report Type: Spontaneous
  Country: US (occurrence: US)
  Receive Date: 20190619
  Receipt Date: 20190619
  Transmission Date: 20190711
  Serious: No
  Sender: FDA-Public Use
  Company Number: US-ROCHE-2276301

PATIENT
  Age: 52 Year
  Sex: Female
  Weight: 132.11 kg

DRUGS (3)
  1. ACTEMRA [Suspect]
     Active Substance: TOCILIZUMAB
     Indication: RHEUMATOID ARTHRITIS
     Route: 058
  2. ACTEMRA [Suspect]
     Active Substance: TOCILIZUMAB
     Dosage: RESTART
     Route: 058
     Dates: start: 20190223
  3. IVIG [Concomitant]
     Active Substance: HUMAN IMMUNOGLOBULIN G
     Dosage: ONGOING: YES
     Route: 065
     Dates: start: 2018

REACTIONS (1)
  - Gastrointestinal sounds abnormal [Not Recovered/Not Resolved]

NARRATIVE: CASE EVENT DATE: 20190224
